FAERS Safety Report 19137961 (Version 2)
Quarter: 2025Q1

REPORT INFORMATION
  Report Type: Spontaneous
  Country: ZA (occurrence: ZA)
  Receive Date: 20210415
  Receipt Date: 20250129
  Transmission Date: 20250408
  Serious: Yes (Other)
  Sender: CIPLA
  Company Number: ZA-CIPLA LTD.-2021ZA02770

PATIENT

DRUGS (3)
  1. MELOXICAM [Suspect]
     Active Substance: MELOXICAM
     Indication: Product used for unknown indication
     Route: 065
     Dates: start: 20041207
  2. METHOTREXATE [Suspect]
     Active Substance: METHOTREXATE
     Indication: Product used for unknown indication
     Route: 065
     Dates: start: 20041207
  3. SULFASALAZINE [Suspect]
     Active Substance: SULFASALAZINE
     Indication: Product used for unknown indication
     Route: 065
     Dates: start: 20041207

REACTIONS (2)
  - Spinal osteoarthritis [Recovering/Resolving]
  - C-reactive protein abnormal [Recovering/Resolving]

NARRATIVE: CASE EVENT DATE: 20090401
